FAERS Safety Report 11008508 (Version 1)
Quarter: 2015Q2

REPORT INFORMATION
  Report Type: Spontaneous
  Country: US (occurrence: None)
  Receive Date: 20150409
  Receipt Date: 20150409
  Transmission Date: 20150821
  Serious: Yes (Hospitalization)
  Sender: FDA-Public Use
  Company Number: None

PATIENT
  Age: 72 Year
  Sex: Female
  Weight: 42 kg

DRUGS (4)
  1. CANAGLIFLOZIN 300 MG JANSSEN [Suspect]
     Active Substance: CANAGLIFLOZIN
     Indication: DIABETES MELLITUS
     Route: 048
     Dates: start: 20150106, end: 20150402
  2. LISINOPRIL. [Concomitant]
     Active Substance: LISINOPRIL
  3. GLIMEPIRIDE. [Concomitant]
     Active Substance: GLIMEPIRIDE
  4. METFORMIN [Concomitant]
     Active Substance: METFORMIN HYDROCHLORIDE

REACTIONS (6)
  - Hypophagia [None]
  - Weight decreased [None]
  - Hyperkalaemia [None]
  - Asthenia [None]
  - Acute kidney injury [None]
  - Decreased appetite [None]

NARRATIVE: CASE EVENT DATE: 20150402
